FAERS Safety Report 8073286-2 (Version None)
Quarter: 2012Q1

REPORT INFORMATION
  Report Type: 
  Country: None (occurrence: None)
  Receive Date: 20120126
  Receipt Date: 20120117
  Transmission Date: 20120608
  Serious: Yes (Death, Hospitalization)
  Sender: FDA-Public Use
  Company Number: GB-TEVA-239388ISR

PATIENT
  Sex: Male

DRUGS (11)
  1. ABTRATERONE ACETATE/PLACEBO [Suspect]
     Indication: PROSTATE CANCER METASTATIC
     Dosage: 250 MILLIGRAM;
     Route: 048
     Dates: start: 20091124, end: 20100318
  2. DICLOFENAC SODIUM [Concomitant]
     Indication: DISEASE PROGRESSION
     Dosage: 75 MILLIGRAM;
     Route: 048
     Dates: start: 20091007
  3. PROCHLORPERAZINE [Concomitant]
     Indication: VOMITING
     Route: 030
     Dates: start: 20100318
  4. LEKOVIT CA [Concomitant]
     Route: 048
     Dates: start: 20050131
  5. CYCLIZINE [Concomitant]
     Indication: ANTIEMETIC SUPPORTIVE CARE
     Dosage: 150 MILLIGRAM;
     Route: 030
     Dates: start: 20100318
  6. PREDNISOLONE [Suspect]
     Indication: PROSTATE CANCER METASTATIC
     Dosage: 75 MILLIGRAM;
     Route: 048
     Dates: start: 20091124
  7. ATENOLOL [Concomitant]
     Indication: HYPERTENSION
     Dosage: 50 MILLIGRAM;
     Route: 048
     Dates: start: 20070706
  8. LOPERAMIDE HCL [Concomitant]
     Indication: DIARRHOEA
     Route: 048
     Dates: start: 20100223
  9. PROSTEP [Concomitant]
     Indication: PROSTATE CANCER METASTATIC
     Dosage: .125 MILLIGRAM;
     Route: 058
     Dates: start: 20051124
  10. IRBESARTAN [Concomitant]
     Indication: HYPERTENSION
     Dosage: 300 MILLIGRAM;
     Route: 048
     Dates: start: 20070713
  11. LANSOPRAZOLE [Concomitant]
     Indication: GASTROOESOPHAGEAL REFLUX DISEASE
     Dosage: 30 MILLIGRAM;
     Route: 048
     Dates: start: 20090420

REACTIONS (2)
  - PROSTATE CANCER METASTATIC [None]
  - INTESTINAL ISCHAEMIA [None]
